FAERS Safety Report 19175046 (Version 1)
Quarter: 2021Q2

REPORT INFORMATION
  Report Type: Other
  Country: US (occurrence: US)
  Receive Date: 20210424
  Receipt Date: 20210424
  Transmission Date: 20210717
  Serious: Yes (Other)
  Sender: FDA-Public Use
  Company Number: US-ROCHE-2812071

PATIENT

DRUGS (2)
  1. BEVACIZUMAB. [Suspect]
     Active Substance: BEVACIZUMAB
     Indication: OVARIAN CANCER
     Route: 065
  2. NIRAPARIB [Suspect]
     Active Substance: NIRAPARIB
     Indication: OVARIAN CANCER
     Dosage: NIRAPARIB 300 MG OR 200 MG (FOR WEIGHT {77 KG OR PLATELET COUNT {150,000/MICRO L AT SCREENING) QD UN
     Route: 065

REACTIONS (7)
  - Neutropenia [Unknown]
  - Fatigue [Unknown]
  - Thrombocytopenia [Unknown]
  - Hypertension [Unknown]
  - Anaemia [Unknown]
  - Small intestinal perforation [Unknown]
  - Intestinal perforation [Unknown]
